FAERS Safety Report 5440992-5 (Version None)
Quarter: 2007Q3

REPORT INFORMATION
  Report Type: 
  Country: None (occurrence: None)
  Receive Date: 20070731
  Receipt Date: 20070607
  Transmission Date: 20080115
  Serious: No
  Sender: FDA-Public Use
  Company Number: US200706001749

PATIENT
  Age: 47 Year
  Sex: Female

DRUGS (4)
  1. BYETTA [Suspect]
     Indication: TYPE 2 DIABETES MELLITUS
     Dosage: 5 UG, 2/D, SUBCUTANEOUS
     Route: 058
     Dates: start: 20070606
  2. EXENATIDE (EXENATIDE PEN) [Concomitant]
  3. HUMULIN 30/70 (INSULIN HUMAN INJECTION, ISOPHANE) [Concomitant]
  4. INSULIN (INSULIN) [Concomitant]

REACTIONS (4)
  - ACCIDENTAL OVERDOSE [None]
  - INCORRECT DOSE ADMINISTERED [None]
  - NAUSEA [None]
  - VOMITING [None]
